FAERS Safety Report 9981381 (Version 1)
Quarter: 2014Q1

REPORT INFORMATION
  Report Type: Spontaneous
  Country: FI (occurrence: FI)
  Receive Date: 20140307
  Receipt Date: 20140307
  Transmission Date: 20141002
  Serious: Yes (Disabling)
  Sender: FDA-Public Use
  Company Number: FI-ASTRAZENECA-2014SE14518

PATIENT
  Age: 52 Year
  Sex: Female

DRUGS (3)
  1. ATACAND PLUS [Suspect]
     Indication: HYPERTENSION
     Route: 048
     Dates: start: 20110601, end: 20120828
  2. ATACAND PLUS [Suspect]
     Indication: HYPERTENSION
     Dosage: CANDEXETIL COMP RATIOPHARM GMBH 1 DF DAILY
     Route: 048
     Dates: start: 20120829, end: 20130317
  3. ATACAND PLUS [Suspect]
     Indication: HYPERTENSION
     Dosage: CANDESARTAN/HYDROCHLORTHIAZID ACTAVIS 1 DF DAILY
     Route: 048
     Dates: start: 20130318

REACTIONS (2)
  - Limb discomfort [Recovered/Resolved]
  - Pain in extremity [Recovered/Resolved]
